FAERS Safety Report 8523205-7 (Version None)
Quarter: 2012Q3

REPORT INFORMATION
  Report Type: 
  Country: None (occurrence: None)
  Receive Date: 20120713
  Receipt Date: 20120713
  Transmission Date: 20120928
  Serious: Yes (Hospitalization)
  Sender: FDA-Public Use
  Company Number: None

PATIENT
  Age: 76 Year
  Sex: Male

DRUGS (1)
  1. OSMOPREP [Suspect]
     Dosage: 7 PM EACH WITH H20 8 OZ 4 TABS 5Q15MIN PO 3AM EACH WITH H20 8 OZ 4 TABS X3 Q 15 MIN PO
     Route: 048
     Dates: start: 20120619, end: 20120620

REACTIONS (1)
  - BLOOD PRESSURE INCREASED [None]
